FAERS Safety Report 4796480-2 (Version None)
Quarter: 2005Q3

REPORT INFORMATION
  Report Type: 
  Country: None (occurrence: None)
  Receive Date: 20050916
  Receipt Date: 20050223
  Transmission Date: 20060218
  Serious: Yes (Other)
  Sender: FDA-Public Use
  Company Number: US-JNJFOC-20041006915

PATIENT
  Age: 36 Year
  Sex: Female

DRUGS (3)
  1. TOPAMAX [Suspect]
     Indication: CONVULSION
     Dosage: ORAL
     Route: 048
  2. TRAZODONE HCL [Concomitant]
  3. LEXAPRO [Concomitant]

REACTIONS (5)
  - CONVULSION [None]
  - DIZZINESS [None]
  - EPILEPTIC AURA [None]
  - SPEECH DISORDER [None]
  - VISUAL DISTURBANCE [None]
